FAERS Safety Report 24381685 (Version 2)
Quarter: 2024Q4

REPORT INFORMATION
  Report Type: Spontaneous
  Country: US (occurrence: US)
  Receive Date: 20241001
  Receipt Date: 20241216
  Transmission Date: 20250115
  Serious: No
  Sender: FDC LIMITED
  Company Number: US-FDC-2024USSPO00696

PATIENT
  Age: 62 Year
  Sex: Male

DRUGS (6)
  1. TIMOLOL MALEATE [Suspect]
     Active Substance: TIMOLOL MALEATE
     Indication: Intraocular pressure test abnormal
     Route: 065
     Dates: start: 2024, end: 20240830
  2. TIMOLOL MALEATE [Suspect]
     Active Substance: TIMOLOL MALEATE
  3. TIMOLOL MALEATE [Suspect]
     Active Substance: TIMOLOL MALEATE
  4. AMLODIPINE [Concomitant]
     Active Substance: AMLODIPINE BESYLATE
     Indication: Product used for unknown indication
     Route: 065
  5. OMEPRAZOLE [Concomitant]
     Active Substance: OMEPRAZOLE
     Indication: Product used for unknown indication
     Route: 065
  6. PRAVASTATIN [Concomitant]
     Active Substance: PRAVASTATIN
     Indication: Product used for unknown indication
     Route: 065

REACTIONS (3)
  - Vision blurred [Unknown]
  - Eye disorder [Unknown]
  - Recalled product administered [Unknown]

NARRATIVE: CASE EVENT DATE: 20240101
